FAERS Safety Report 15268347 (Version 1)
Quarter: 2018Q3

REPORT INFORMATION
  Report Type: Spontaneous
  Country: US (occurrence: US)
  Receive Date: 20180726
  Receipt Date: 20180726
  Transmission Date: 20181010
  Serious: Yes (Disabling, Other)
  Sender: FDA-Public Use
  Company Number: None

PATIENT
  Age: 56 Year
  Sex: Female
  Weight: 83.25 kg

DRUGS (11)
  1. CIPROFLOXACIN. [Suspect]
     Active Substance: CIPROFLOXACIN
     Indication: SINUSITIS
     Dosage: ?          QUANTITY:20 TABLET(S);?
     Route: 048
     Dates: start: 20170418, end: 20170421
  2. METHYLPREDNISOLONE 4MG [Suspect]
     Active Substance: METHYLPREDNISOLONE
     Indication: SINUSITIS
     Dosage: ?          QUANTITY:21 TABLET(S);OTHER FREQUENCY:WEANED DOSAGES;?
     Route: 048
     Dates: start: 20170418
  3. K2 [Concomitant]
     Active Substance: JWH-018
  4. PRE + PROBIOTICS [Concomitant]
  5. MAGNESIUM [Concomitant]
     Active Substance: MAGNESIUM
  6. VITAMIN D3 [Concomitant]
     Active Substance: CHOLECALCIFEROL
  7. VITAMIN C [Concomitant]
     Active Substance: ASCORBIC ACID
  8. COLLAGEN [Concomitant]
     Active Substance: COLLAGEN
  9. ORGANIC BONE BROTH [Concomitant]
  10. MULTIVITAMIN [Concomitant]
     Active Substance: VITAMINS
  11. MEDICAL CANNABIS OIL [Concomitant]

REACTIONS (31)
  - Disturbance in attention [None]
  - Anxiety [None]
  - Dry eye [None]
  - Food allergy [None]
  - Tendonitis [None]
  - Feeling abnormal [None]
  - Amnesia [None]
  - Headache [None]
  - Rash [None]
  - Myalgia [None]
  - Gastric disorder [None]
  - Collagen disorder [None]
  - Balance disorder [None]
  - Dry mouth [None]
  - Insomnia [None]
  - Asthenia [None]
  - Muscle atrophy [None]
  - Blood cholesterol increased [None]
  - Alopecia [None]
  - Epistaxis [None]
  - Depression [None]
  - Neuropathy peripheral [None]
  - Systemic lupus erythematosus [None]
  - Paraesthesia [None]
  - Vitamin D deficiency [None]
  - Antisocial behaviour [None]
  - Dry skin [None]
  - Depersonalisation/derealisation disorder [None]
  - Abdominal distension [None]
  - Sinusitis [None]
  - Exercise tolerance decreased [None]

NARRATIVE: CASE EVENT DATE: 20170421
